FAERS Safety Report 10078996 (Version 2)
Quarter: 2014Q3

REPORT INFORMATION
  Report Type: Spontaneous
  Country: US (occurrence: US)
  Receive Date: 20140415
  Receipt Date: 20140817
  Transmission Date: 20150326
  Serious: No
  Sender: FDA-Public Use
  Company Number: US-TEVA-475651USA

PATIENT
  Sex: Male

DRUGS (1)
  1. NUVIGIL [Suspect]
     Active Substance: ARMODAFINIL
     Indication: MEMORY IMPAIRMENT

REACTIONS (3)
  - Feeling abnormal [Unknown]
  - Drug effect prolonged [Unknown]
  - Off label use [Unknown]
